FAERS Safety Report 4295378-6 (Version None)
Quarter: 2004Q1

REPORT INFORMATION
  Report Type: 
  Country: None (occurrence: None)
  Receive Date: 20040216
  Receipt Date: 20030702
  Transmission Date: 20041129
  Serious: Yes (Hospitalization)
  Sender: FDA-Public Use
  Company Number: US-GLAXOSMITHKLINE-A0415820A

PATIENT
  Age: 33 Year
  Sex: Female
  Weight: 65 kg

DRUGS (3)
  1. LAMICTAL [Suspect]
     Indication: BIPOLAR DISORDER
     Route: 048
     Dates: start: 20030614, end: 20030625
  2. CELEXA [Suspect]
     Indication: DEPRESSION
     Route: 048
     Dates: start: 20030514, end: 20030625
  3. KLONOPIN [Suspect]
     Route: 048
     Dates: start: 20030614

REACTIONS (2)
  - INTENTIONAL OVERDOSE [None]
  - NO ADVERSE DRUG EFFECT [None]
